FAERS Safety Report 18489554 (Version 1)
Quarter: 2020Q4

REPORT INFORMATION
  Report Type: Spontaneous
  Country: US (occurrence: US)
  Receive Date: 20201110
  Receipt Date: 20201110
  Transmission Date: 20210114
  Serious: No
  Sender: FDA-Public Use
  Company Number: None

PATIENT
  Age: 24 Year
  Sex: Male
  Weight: 63 kg

DRUGS (3)
  1. REMDESIVIR. [Suspect]
     Active Substance: REMDESIVIR
     Indication: ACUTE RESPIRATORY FAILURE
     Route: 041
     Dates: start: 20201106, end: 20201110
  2. DECADRON [Concomitant]
     Active Substance: DEXAMETHASONE
     Dates: start: 20201106, end: 20201110
  3. REMDESIVIR. [Suspect]
     Active Substance: REMDESIVIR
     Indication: COVID-19 PNEUMONIA
     Route: 041
     Dates: start: 20201106, end: 20201110

REACTIONS (1)
  - Bradycardia [None]

NARRATIVE: CASE EVENT DATE: 20201109
